FAERS Safety Report 20035975 (Version 1)
Quarter: 2021Q4

REPORT INFORMATION
  Report Type: Spontaneous
  Country: IT (occurrence: IT)
  Receive Date: 20211105
  Receipt Date: 20211105
  Transmission Date: 20220303
  Serious: Yes (Other)
  Sender: FDA-Public Use
  Company Number: IT-SA-2021SA340710

PATIENT
  Sex: Male

DRUGS (1)
  1. SEVELAMER [Suspect]
     Active Substance: SEVELAMER
     Indication: Product used for unknown indication
     Dosage: UNK
     Route: 065
     Dates: start: 201903

REACTIONS (8)
  - Crystal deposit intestine [Unknown]
  - Large intestinal stenosis [Unknown]
  - Weight decreased [Unknown]
  - Decreased appetite [Unknown]
  - Flatulence [Unknown]
  - Pseudopolyp [Unknown]
  - Diverticulum [Unknown]
  - Ill-defined disorder [Unknown]

NARRATIVE: CASE EVENT DATE: 20200401
